FAERS Safety Report 10676520 (Version 6)
Quarter: 2015Q4

REPORT INFORMATION
  Report Type: Report from Study
  Country: AU (occurrence: AU)
  Receive Date: 20141226
  Receipt Date: 20151006
  Transmission Date: 20160304
  Serious: Yes (Hospitalization, Other)
  Sender: FDA-Public Use
  Company Number: PHHY2014AU163990

PATIENT
  Age: 53 Year
  Sex: Male

DRUGS (2)
  1. CLOZARIL [Suspect]
     Active Substance: CLOZAPINE
     Indication: SCHIZOPHRENIA
     Dosage: 200 OT
     Route: 048
     Dates: start: 19950104
  2. CLOZARIL [Suspect]
     Active Substance: CLOZAPINE
     Dosage: 212.5 MG, QD
     Route: 048

REACTIONS (9)
  - Neutropenia [Not Recovered/Not Resolved]
  - Blood glucose increased [Unknown]
  - Thrombocytopenia [Not Recovered/Not Resolved]
  - Leukopenia [Not Recovered/Not Resolved]
  - Cytopenia [Unknown]
  - Hypersplenism [Not Recovered/Not Resolved]
  - Blood cholesterol decreased [Unknown]
  - Paranoia [Unknown]
  - Hepatitis C [Not Recovered/Not Resolved]

NARRATIVE: CASE EVENT DATE: 20141014
